FAERS Safety Report 16936336 (Version 1)
Quarter: 2019Q4

REPORT INFORMATION
  Report Type: Spontaneous
  Country: CN (occurrence: CN)
  Receive Date: 20191018
  Receipt Date: 20191018
  Transmission Date: 20200122
  Serious: Yes (Other)
  Sender: FDA-Public Use
  Company Number: CN-PFIZER INC-2019450287

PATIENT
  Age: 19 Month
  Sex: Male
  Weight: 11 kg

DRUGS (1)
  1. ZITHROMAX [Suspect]
     Active Substance: AZITHROMYCIN DIHYDRATE
     Indication: ANTI-INFECTIVE THERAPY
     Dosage: 0.1 G, 1X/DAY
     Route: 048
     Dates: start: 20191009, end: 20191009

REACTIONS (4)
  - Rash maculo-papular [Recovered/Resolved]
  - Urticaria [Recovered/Resolved]
  - Dermatitis allergic [Recovered/Resolved]
  - Rash [Recovered/Resolved]

NARRATIVE: CASE EVENT DATE: 20191009
